FAERS Safety Report 12248731 (Version 2)
Quarter: 2016Q3

REPORT INFORMATION
  Report Type: Spontaneous
  Country: US (occurrence: US)
  Receive Date: 20160408
  Receipt Date: 20160719
  Transmission Date: 20161109
  Serious: Yes (Hospitalization)
  Sender: FDA-Public Use
  Company Number: US-EDENBRIDGE PHARMACEUTICALS, LLC-US-2016EDE000003

PATIENT

DRUGS (2)
  1. IVERMECTIN. [Suspect]
     Active Substance: IVERMECTIN
     Dosage: 15 MG, UNK
     Route: 048
     Dates: start: 20160203, end: 20160203
  2. IVERMECTIN. [Suspect]
     Active Substance: IVERMECTIN
     Indication: ACARODERMATITIS
     Dosage: 15 MG, UNK
     Route: 048
     Dates: start: 20160127, end: 20160127

REACTIONS (8)
  - Hydrocephalus [Not Recovered/Not Resolved]
  - Hodgkin^s disease [Not Recovered/Not Resolved]
  - Swelling [Recovering/Resolving]
  - Head discomfort [Unknown]
  - Cerebral ventricle dilatation [Not Recovered/Not Resolved]
  - Eye swelling [Recovering/Resolving]
  - Headache [Unknown]
  - Product use issue [Unknown]

NARRATIVE: CASE EVENT DATE: 20160127
